FAERS Safety Report 17627775 (Version 1)
Quarter: 2020Q2

REPORT INFORMATION
  Report Type: Spontaneous
  Country: US (occurrence: US)
  Receive Date: 20200405
  Receipt Date: 20200405
  Transmission Date: 20200713
  Serious: No
  Sender: FDA-Public Use
  Company Number: US-ASTRAZENECA-2020SE38205

PATIENT
  Age: 3 Year
  Sex: Male
  Weight: 13.2 kg

DRUGS (1)
  1. NEXIUM [Suspect]
     Active Substance: ESOMEPRAZOLE MAGNESIUM
     Indication: EOSINOPHILIC OESOPHAGITIS
     Route: 048
     Dates: start: 201906

REACTIONS (6)
  - Drug ineffective [Unknown]
  - Mouth swelling [Unknown]
  - Hypersensitivity [Unknown]
  - Skin swelling [Unknown]
  - Product use in unapproved indication [Unknown]
  - Rash [Unknown]
